FAERS Safety Report 8732198 (Version 4)
Quarter: 2012Q4

REPORT INFORMATION
  Report Type: 
  Country: US (occurrence: US)
  Receive Date: 20120801
  Receipt Date: 20121009
  Transmission Date: 20130627
  Serious: Yes (Other)
  Sender: FDA-Public Use
  Company Number: 2012P1049552

PATIENT
  Age: 82 Year
  Sex: Female
  Weight: 66.23 kg

DRUGS (9)
  1. IMIQUIMOD [Suspect]
     Dosage: MON-FRI
     Route: 061
     Dates: start: 20120430, end: 201206
  2. PRADAXA [Suspect]
     Dates: end: 2012
  3. ASPIRIN [Suspect]
     Dates: end: 201207
  4. PROPAFENONE [Concomitant]
  5. DIGOXIN [Concomitant]
  6. GLUCOSAMINE CHONDROITIN [Concomitant]
  7. RED YEAST RICE [Concomitant]
  8. FISH OIL [Concomitant]
  9. CALCIUM + VITAMIN D [Concomitant]

REACTIONS (16)
  - Application site pruritus [Recovered/Resolved]
  - Application site pain [Recovered/Resolved]
  - Wound secretion [Recovered/Resolved]
  - Application site erythema [Recovered/Resolved]
  - Application site scab [Recovered/Resolved]
  - Application site pain [Recovered/Resolved]
  - Application site discolouration [Not Recovered/Not Resolved]
  - Gastrointestinal ulcer haemorrhage [Recovered/Resolved]
  - Haematuria [Recovered/Resolved]
  - Application site scar [Not Recovered/Not Resolved]
  - Skin cancer [Not Recovered/Not Resolved]
  - Gastritis [Not Recovered/Not Resolved]
  - Iron deficiency anaemia [Not Recovered/Not Resolved]
  - Dry skin [Not Recovered/Not Resolved]
  - Haemoglobin decreased [Recovered/Resolved]
  - Haematocrit decreased [Recovered/Resolved]
